FAERS Safety Report 17974123 (Version 1)
Quarter: 2020Q3

REPORT INFORMATION
  Report Type: Spontaneous
  Country: US (occurrence: US)
  Receive Date: 20200702
  Receipt Date: 20200702
  Transmission Date: 20201103
  Serious: No
  Sender: FDA-Public Use
  Company Number: None

PATIENT
  Sex: Female

DRUGS (2)
  1. MAYZENT [Suspect]
     Active Substance: SIPONIMOD
  2. DALFAMPRIDINE. [Suspect]
     Active Substance: DALFAMPRIDINE

REACTIONS (2)
  - Infection [None]
  - Rash [None]
